FAERS Safety Report 7304055-6 (Version None)
Quarter: 2011Q1

REPORT INFORMATION
  Report Type: 
  Country: None (occurrence: None)
  Receive Date: 20110221
  Receipt Date: 20110208
  Transmission Date: 20110831
  Serious: Yes (Hospitalization, Other)
  Sender: FDA-Public Use
  Company Number: PHHY2010NZ52487

PATIENT
  Sex: Female

DRUGS (6)
  1. CLOZARIL [Suspect]
     Indication: SCHIZOPHRENIA
     Dosage: UNK
     Dates: start: 20061106
  2. EPILIM [Concomitant]
  3. OLANZAPINE [Concomitant]
  4. CLOZARIL [Suspect]
     Dosage: UNK
     Dates: start: 20100806
  5. CLONAZEPAM [Concomitant]
  6. NICOTINE [Concomitant]

REACTIONS (9)
  - NEUTROPHIL COUNT DECREASED [None]
  - CONSTIPATION [None]
  - MANIA [None]
  - WHITE BLOOD CELL COUNT DECREASED [None]
  - BLOOD MAGNESIUM DECREASED [None]
  - EOSINOPHIL COUNT INCREASED [None]
  - DELIRIUM [None]
  - BIPOLAR DISORDER [None]
  - DEPRESSION [None]
